FAERS Safety Report 9503555 (Version 1)
Quarter: 2013Q1

REPORT INFORMATION
  Report Type: Spontaneous
  Country: US (occurrence: None)
  Receive Date: 20130130
  Receipt Date: 20130130
  Transmission Date: 20140127
  Serious: Yes (Hospitalization)
  Sender: FDA-Public Use
  Company Number: US2012100007335

PATIENT
  Age: 63 Year
  Sex: Female
  Weight: 69.9 kg

DRUGS (3)
  1. BYDUREON [Suspect]
     Indication: TYPE 2 DIABETES MELLITUS
     Route: 058
     Dates: start: 201207
  2. LEVEMIR [Concomitant]
  3. METFORMIN [Concomitant]

REACTIONS (2)
  - Blood glucose decreased [None]
  - Accidental overdose [None]
